FAERS Safety Report 4362939-5 (Version None)
Quarter: 2004Q2

REPORT INFORMATION
  Report Type: 
  Country: None (occurrence: None)
  Receive Date: 20040518
  Receipt Date: 20040506
  Transmission Date: 20050107
  Serious: Yes (Other)
  Sender: FDA-Public Use
  Company Number: CA-JNJFOC-20040501634

PATIENT
  Age: 37 Year
  Sex: Female

DRUGS (17)
  1. INFLIXIMAB, RECOMBINANT - BLINDED PLACEBO (PLACEBO) LYOPHILIZED POWDER [Suspect]
     Indication: COLITIS ULCERATIVE
     Dosage: SEE IMAGE
     Route: 042
     Dates: start: 20030604
  2. INFLIXIMAB, RECOMBINANT - BLINDED PLACEBO (PLACEBO) LYOPHILIZED POWDER [Suspect]
     Indication: COLITIS ULCERATIVE
     Dosage: SEE IMAGE
     Route: 042
     Dates: start: 20030617
  3. INFLIXIMAB, RECOMBINANT - BLINDED PLACEBO (PLACEBO) LYOPHILIZED POWDER [Suspect]
     Indication: COLITIS ULCERATIVE
     Dosage: SEE IMAGE
     Route: 042
     Dates: start: 20030715
  4. INFLIXIMAB, RECOMBINANT - BLINDED PLACEBO (PLACEBO) LYOPHILIZED POWDER [Suspect]
     Indication: COLITIS ULCERATIVE
     Dosage: SEE IMAGE
     Route: 042
     Dates: start: 20030910
  5. INFLIXIMAB, RECOMBINANT - BLINDED PLACEBO (PLACEBO) LYOPHILIZED POWDER [Suspect]
     Indication: COLITIS ULCERATIVE
     Dosage: SEE IMAGE
     Route: 042
     Dates: start: 20031105
  6. INFLIXIMAB, RECOMBINANT - BLINDED PLACEBO (PLACEBO) LYOPHILIZED POWDER [Suspect]
     Indication: COLITIS ULCERATIVE
     Dosage: SEE IMAGE
     Route: 042
     Dates: start: 20040105
  7. INFLIXIMAB, RECOMBINANT - BLINDED PLACEBO (PLACEBO) LYOPHILIZED POWDER [Suspect]
     Indication: COLITIS ULCERATIVE
     Dosage: SEE IMAGE
     Route: 042
     Dates: start: 20040225
  8. INFLIXIMAB, RECOMBINANT - BLINDED PLACEBO (PLACEBO) LYOPHILIZED POWDER [Suspect]
     Indication: COLITIS ULCERATIVE
     Dosage: SEE IMAGE
     Route: 042
     Dates: start: 20040504
  9. PLACEBO (PLACEBO) LYOPHILIZED POWDER [Suspect]
     Indication: COLITIS ULCERATIVE
     Dosage: SEE IMAGE
     Route: 042
     Dates: start: 20030604
  10. PLACEBO (PLACEBO) LYOPHILIZED POWDER [Suspect]
     Indication: COLITIS ULCERATIVE
     Dosage: SEE IMAGE
     Route: 042
     Dates: start: 20030617
  11. PLACEBO (PLACEBO) LYOPHILIZED POWDER [Suspect]
     Indication: COLITIS ULCERATIVE
     Dosage: SEE IMAGE
     Route: 042
     Dates: start: 20030715
  12. PLACEBO (PLACEBO) LYOPHILIZED POWDER [Suspect]
     Indication: COLITIS ULCERATIVE
     Dosage: SEE IMAGE
     Route: 042
     Dates: start: 20030910
  13. PLACEBO (PLACEBO) LYOPHILIZED POWDER [Suspect]
     Indication: COLITIS ULCERATIVE
     Dosage: SEE IMAGE
     Route: 042
     Dates: start: 20031105
  14. PLACEBO (PLACEBO) LYOPHILIZED POWDER [Suspect]
     Indication: COLITIS ULCERATIVE
     Dosage: SEE IMAGE
     Route: 042
     Dates: start: 20040105
  15. PLACEBO (PLACEBO) LYOPHILIZED POWDER [Suspect]
     Indication: COLITIS ULCERATIVE
     Dosage: SEE IMAGE
     Route: 042
     Dates: start: 20040225
  16. PLACEBO (PLACEBO) LYOPHILIZED POWDER [Suspect]
     Indication: COLITIS ULCERATIVE
     Dosage: SEE IMAGE
     Route: 042
     Dates: start: 20040504
  17. LOSEC (OMEPRAZOLE) [Concomitant]

REACTIONS (6)
  - ADENOMYOSIS [None]
  - CERVICITIS [None]
  - DYSMENORRHOEA [None]
  - ENDOMETRIOSIS [None]
  - LEIOMYOMA [None]
  - OVARIAN CYST [None]
